FAERS Safety Report 7534034-5 (Version None)
Quarter: 2011Q2

REPORT INFORMATION
  Report Type: 
  Country: None (occurrence: None)
  Receive Date: 20110608
  Receipt Date: 20060830
  Transmission Date: 20111010
  Serious: Yes (Other)
  Sender: FDA-Public Use
  Company Number: PHMT2006CA01745

PATIENT
  Sex: Male

DRUGS (10)
  1. DEMEROL [Concomitant]
  2. K-DUR [Concomitant]
  3. SANDOSTATIN LAR [Suspect]
     Indication: ADENOCARCINOMA
     Dosage: 20 MG, QMO
     Dates: start: 20050822
  4. LOMOTIL [Concomitant]
  5. NAPROSYN [Concomitant]
  6. PROCHLORPERAZINE TAB [Concomitant]
  7. ATIVAN [Concomitant]
  8. CHEMOTHERAPEUTICS,OTHER [Concomitant]
     Dosage: UNK, EVERY 2 WEEKS
  9. ZOFRAN [Concomitant]
  10. PANTOPRAZOLE [Concomitant]

REACTIONS (1)
  - BLINDNESS TRANSIENT [None]
